FAERS Safety Report 5919053-4 (Version None)
Quarter: 2008Q4

REPORT INFORMATION
  Report Type: 
  Country: None (occurrence: None)
  Receive Date: 20081010
  Receipt Date: 20081006
  Transmission Date: 20090506
  Serious: Yes (Death, Hospitalization, Other)
  Sender: FDA-Public Use
  Company Number: 2007SP014503

PATIENT
  Age: 63 Year
  Sex: Male
  Weight: 71 kg

DRUGS (17)
  1. TEMODAL [Suspect]
     Indication: OLIGODENDROGLIOMA
     Dosage: SEE IMAGE
     Route: 048
     Dates: start: 20060722, end: 20060920
  2. TEMODAL [Suspect]
     Indication: OLIGODENDROGLIOMA
     Dosage: SEE IMAGE
     Route: 048
     Dates: start: 20061014, end: 20061018
  3. TEMODAL [Suspect]
     Indication: OLIGODENDROGLIOMA
     Dosage: SEE IMAGE
     Route: 048
     Dates: start: 20061111, end: 20061115
  4. TEMODAL [Suspect]
     Indication: OLIGODENDROGLIOMA
     Dosage: SEE IMAGE
     Route: 048
     Dates: start: 20061216, end: 20061220
  5. TEMODAL [Suspect]
     Indication: OLIGODENDROGLIOMA
     Dosage: SEE IMAGE
     Route: 048
     Dates: start: 20070221, end: 20070225
  6. TEMODAL [Suspect]
     Indication: OLIGODENDROGLIOMA
     Dosage: SEE IMAGE
     Route: 048
     Dates: start: 20070418, end: 20070422
  7. TEMODAL [Suspect]
     Indication: OLIGODENDROGLIOMA
     Dosage: SEE IMAGE
     Route: 048
     Dates: start: 20070627, end: 20070701
  8. DEPAKENE [Suspect]
     Indication: DRUG USE FOR UNKNOWN INDICATION
     Dosage: PO
     Route: 048
  9. TEGRETOL [Suspect]
     Indication: DRUG USE FOR UNKNOWN INDICATION
     Dosage: PO
     Route: 048
     Dates: start: 20070128
  10. GABAPEN (GABAPENTIN) [Suspect]
     Indication: DRUG USE FOR UNKNOWN INDICATION
     Dosage: PO
     Route: 048
     Dates: start: 20070131
  11. PROCARBAZINE HYDROCHLORIDE (PROCARSAZIN HYDROCHLORIDE) [Suspect]
     Indication: OLIGODENDROGLIOMA
     Dosage: PO
     Route: 048
     Dates: start: 20051117, end: 20060526
  12. PROCARBAZINE HYDROCHLORIDE (PROCARSAZIN HYDROCHLORIDE) [Suspect]
     Indication: OLIGODENDROGLIOMA
     Dosage: PO
     Route: 048
     Dates: start: 20070216
  13. NIDRAN (NIMUSTINE HYDROCHLORIDE) [Suspect]
     Indication: OLIGODENDROGLIOMA
     Dates: start: 20051117, end: 20060512
  14. ONCOVIN [Suspect]
     Indication: OLIGODENDROGLIOMA
     Dates: start: 20051124, end: 20060324
  15. NAVOBAN [Concomitant]
  16. NAUZELIN [Concomitant]
  17. TEMODAL [Suspect]
     Dates: start: 20070830, end: 20070902

REACTIONS (5)
  - CONVULSION [None]
  - MYELODYSPLASTIC SYNDROME [None]
  - NEOPLASM PROGRESSION [None]
  - PNEUMONIA [None]
  - RESPIRATORY FAILURE [None]
